FAERS Safety Report 8849842 (Version 1)
Quarter: 2012Q4

REPORT INFORMATION
  Report Type: 
  Country: US (occurrence: US)
  Receive Date: 20121019
  Receipt Date: 20121019
  Transmission Date: 20130627
  Serious: Yes (Hospitalization, Other)
  Sender: FDA-Public Use
  Company Number: US-ELI_LILLY_AND_COMPANY-US201210003447

PATIENT
  Age: 90 Year
  Sex: Female

DRUGS (5)
  1. HUMALOG 25% LISPRO, 75% NPL [Suspect]
     Indication: DIABETES MELLITUS
     Dosage: UNK, unknown
  2. HUMALOG 25% LISPRO, 75% NPL [Suspect]
     Dosage: 20 u, each morning
  3. HUMALOG 25% LISPRO, 75% NPL [Suspect]
     Dosage: 15 u, each evening
  4. INSULIN [Concomitant]
     Indication: DIABETES MELLITUS
     Dosage: UNK, unknown
     Route: 042
     Dates: start: 201205, end: 201206
  5. NOVOLOG MIX 70/30 [Concomitant]

REACTIONS (5)
  - Colon cancer [Unknown]
  - Colon cancer metastatic [Unknown]
  - Blood glucose fluctuation [Unknown]
  - Weight decreased [Unknown]
  - Injection site anaesthesia [Unknown]
